FAERS Safety Report 4332511-1 (Version None)
Quarter: 2004Q2

REPORT INFORMATION
  Report Type: 
  Country: None (occurrence: None)
  Receive Date: 20040401
  Receipt Date: 20040317
  Transmission Date: 20050107
  Serious: Yes (Other)
  Sender: FDA-Public Use
  Company Number: 2003IM001292

PATIENT
  Age: 51 Year
  Sex: Female
  Weight: 77 kg

DRUGS (7)
  1. INTERFERON GAMMA-1B (INTERFERON GAMMA-1B) [Suspect]
     Indication: OVARIAN CANCER
     Dosage: 100 UG; TIW; SUBCUTANEOUS
     Route: 058
     Dates: start: 20031222, end: 20031224
  2. CARBOPLATIN [Suspect]
     Indication: OVARIAN CANCER
     Dosage: 530 MG; Q3W; INTRAVENOUS
     Route: 042
     Dates: start: 20031222, end: 20031222
  3. PACLITAXEL [Suspect]
     Indication: OVARIAN CANCER
     Dosage: 332 MG; Q3W; INTRAVENOUS
     Route: 042
     Dates: start: 20031222, end: 20031222
  4. TROPISETRON [Concomitant]
  5. DEXAMETHASONE [Concomitant]
  6. DIPHENHYDRAMINE HCL [Concomitant]
  7. CIMETIDINE HCL [Concomitant]

REACTIONS (4)
  - MYALGIA [None]
  - NEUROPATHIC PAIN [None]
  - PARAESTHESIA [None]
  - PERIPHERAL MOTOR NEUROPATHY [None]
